FAERS Safety Report 7361682-8 (Version None)
Quarter: 2011Q1

REPORT INFORMATION
  Report Type: 
  Country: None (occurrence: None)
  Receive Date: 20110318
  Receipt Date: 20110303
  Transmission Date: 20110831
  Serious: Yes (Death)
  Sender: FDA-Public Use
  Company Number: GB-GENENTECH-314504

PATIENT
  Weight: 53 kg

DRUGS (13)
  1. NICORANDIL [Concomitant]
     Indication: PRODUCT USED FOR UNKNOWN INDICATION
  2. OMEPRAZOLE [Concomitant]
     Indication: PRODUCT USED FOR UNKNOWN INDICATION
  3. LUCENTIS [Suspect]
     Indication: PRODUCT USED FOR UNKNOWN INDICATION
     Route: 031
  4. ISOTARD [Concomitant]
     Indication: PRODUCT USED FOR UNKNOWN INDICATION
  5. SOLIFENACIN [Concomitant]
     Indication: PRODUCT USED FOR UNKNOWN INDICATION
  6. ISPAGHULA [Concomitant]
     Indication: PRODUCT USED FOR UNKNOWN INDICATION
  7. MAALOX (CALCIUM CARBONATE) [Concomitant]
     Indication: PRODUCT USED FOR UNKNOWN INDICATION
  8. BENZALKONIUM CHLORIDE [Concomitant]
     Indication: PRODUCT USED FOR UNKNOWN INDICATION
  9. BISOPROLOL [Concomitant]
     Indication: PRODUCT USED FOR UNKNOWN INDICATION
  10. ADCAL-D3 [Concomitant]
     Indication: PRODUCT USED FOR UNKNOWN INDICATION
  11. DIMETICONE [Concomitant]
     Indication: PRODUCT USED FOR UNKNOWN INDICATION
  12. NITROLINGUAL [Concomitant]
     Indication: PRODUCT USED FOR UNKNOWN INDICATION
  13. ACETAMINOPHEN AND CODEINE PHOSPHATE [Concomitant]
     Indication: PRODUCT USED FOR UNKNOWN INDICATION

REACTIONS (15)
  - ABSCESS [None]
  - STAPHYLOCOCCAL INFECTION [None]
  - RADIAL NERVE PALSY [None]
  - MONOCYTE COUNT DECREASED [None]
  - BRADYCARDIA [None]
  - RETINAL VEIN OCCLUSION [None]
  - HAEMOGLOBIN DECREASED [None]
  - BLOOD ALBUMIN INCREASED [None]
  - GLOBULINS INCREASED [None]
  - BLOOD GLUCOSE INCREASED [None]
  - ELECTROCARDIOGRAM ABNORMAL [None]
  - BLOOD UREA INCREASED [None]
  - DIVERTICULITIS [None]
  - HIGH DENSITY LIPOPROTEIN INCREASED [None]
  - URINARY TRACT INFECTION [None]
